FAERS Safety Report 4489878-3 (Version None)
Quarter: 2004Q4

REPORT INFORMATION
  Report Type: 
  Country: None (occurrence: None)
  Receive Date: 20041026
  Receipt Date: 20041013
  Transmission Date: 20050328
  Serious: Yes (Hospitalization)
  Sender: FDA-Public Use
  Company Number: 2004077869

PATIENT
  Age: 61 Year
  Sex: Male

DRUGS (2)
  1. NEURONTIN [Suspect]
     Indication: PAIN
     Dosage: 900 MG (900 MG, 1 IN 1 D), ORAL
     Route: 048
     Dates: start: 20030601, end: 20040101
  2. TRAMADOL HCL [Concomitant]

REACTIONS (7)
  - EYE OEDEMA [None]
  - GENERALISED OEDEMA [None]
  - HEADACHE [None]
  - INSOMNIA [None]
  - MYELODYSPLASTIC SYNDROME [None]
  - PAIN IN EXTREMITY [None]
  - REFRACTORY ANAEMIA [None]
